FAERS Safety Report 18136237 (Version 1)
Quarter: 2020Q3

REPORT INFORMATION
  Report Type: Spontaneous
  Country: US (occurrence: US)
  Receive Date: 20200811
  Receipt Date: 20200811
  Transmission Date: 20201103
  Serious: No
  Sender: FDA-Public Use
  Company Number: US-SA-2020SA204299

PATIENT

DRUGS (2)
  1. LANTUS SOLOSTAR [Suspect]
     Active Substance: INSULIN GLARGINE
     Dosage: 35 IU, QD (ONE TIME AT NIGHT)
     Route: 065
  2. LANTUS SOLOSTAR [Suspect]
     Active Substance: INSULIN GLARGINE
     Indication: TYPE 2 DIABETES MELLITUS
     Dosage: 40 IU, QD (ONE TIME AT NIGHT)
     Route: 065
     Dates: start: 2016

REACTIONS (3)
  - Body fat disorder [Unknown]
  - Wrong technique in device usage process [Unknown]
  - Weight decreased [Unknown]
